FAERS Safety Report 23056512 (Version 1)
Quarter: 2023Q4

REPORT INFORMATION
  Report Type: Spontaneous
  Country: GB (occurrence: GB)
  Receive Date: 20231011
  Receipt Date: 20231011
  Transmission Date: 20240110
  Serious: Yes (Other)
  Sender: FDA-Public Use
  Company Number: GB-MHRA-MED-202310010633540350-CFHMS

PATIENT
  Age: 1 Year
  Sex: Male

DRUGS (1)
  1. OVEX [Suspect]
     Active Substance: MEBENDAZOLE
     Indication: Enterobiasis
     Route: 065

REACTIONS (6)
  - Swelling face [Recovering/Resolving]
  - Erythema [Unknown]
  - Swelling of eyelid [Unknown]
  - Rash macular [Unknown]
  - Rash erythematous [Unknown]
  - Hypersensitivity [Unknown]
